FAERS Safety Report 19443224 (Version 3)
Quarter: 2021Q3

REPORT INFORMATION
  Report Type: Spontaneous
  Country: GB (occurrence: GB)
  Receive Date: 20210621
  Receipt Date: 20210731
  Transmission Date: 20211014
  Serious: Yes (Other)
  Sender: FDA-Public Use
  Company Number: NVSC2021GB132979

PATIENT
  Age: 39 Year
  Sex: Male

DRUGS (1)
  1. SANDOZ OMEPRAZOLE [Suspect]
     Active Substance: OMEPRAZOLE
     Indication: GASTROOESOPHAGEAL REFLUX DISEASE
     Dosage: 1 DF, QD
     Route: 048
     Dates: start: 20200810, end: 20200820

REACTIONS (5)
  - Haemorrhage [Recovered/Resolved]
  - Drug ineffective [Recovered/Resolved]
  - Genital swelling [Recovered/Resolved]
  - Product odour abnormal [Recovered/Resolved]
  - Burning sensation [Recovered/Resolved]

NARRATIVE: CASE EVENT DATE: 2020
